FAERS Safety Report 15815199 (Version 1)
Quarter: 2019Q1

REPORT INFORMATION
  Report Type: Report from Study
  Country: IT (occurrence: IT)
  Receive Date: 20190112
  Receipt Date: 20190112
  Transmission Date: 20190417
  Serious: Yes (Hospitalization)
  Sender: FDA-Public Use
  Company Number: IT-ACCORD-101515

PATIENT
  Age: 16 Year
  Sex: Female

DRUGS (1)
  1. MONTELUKAST [Suspect]
     Active Substance: MONTELUKAST SODIUM
     Route: 048

REACTIONS (2)
  - Drug abuse [Unknown]
  - Poisoning [Unknown]

NARRATIVE: CASE EVENT DATE: 20180310
